FAERS Safety Report 20154940 (Version 2)
Quarter: 2022Q1

REPORT INFORMATION
  Report Type: Report from Study
  Country: TH (occurrence: TH)
  Receive Date: 20211207
  Receipt Date: 20220114
  Transmission Date: 20220423
  Serious: Yes (Other)
  Sender: FDA-Public Use
  Company Number: TH-BAYER-2021A261645

PATIENT
  Sex: Female

DRUGS (1)
  1. STIVARGA [Suspect]
     Active Substance: REGORAFENIB
     Indication: Colorectal cancer
     Dosage: 160 MG, QD
     Route: 048
     Dates: start: 20210722

REACTIONS (4)
  - Surgery [Unknown]
  - Wound [Unknown]
  - Intestinal perforation [Not Recovered/Not Resolved]
  - Vascular injury [Not Recovered/Not Resolved]
